FAERS Safety Report 9197027 (Version 1)
Quarter: 2013Q1

REPORT INFORMATION
  Report Type: Spontaneous
  Country: US (occurrence: None)
  Receive Date: 20120709
  Receipt Date: 20120709
  Transmission Date: 20140127
  Serious: Yes (Hospitalization)
  Sender: FDA-Public Use
  Company Number: PHEH2012US001600

PATIENT
  Age: 76 Year
  Sex: Male
  Weight: 76.3 kg

DRUGS (3)
  1. GLEEVEC [Suspect]
  2. LOMOTIL (ATROPINE SULFATE, DIPHENOXYLATE HYDROCHLORIDE) [Concomitant]
  3. OXYCODONE (OXYCODONE) [Concomitant]

REACTIONS (2)
  - Nausea [None]
  - Vomiting [None]
